FAERS Safety Report 6326157-3 (Version None)
Quarter: 2009Q3

REPORT INFORMATION
  Report Type: 
  Country: None (occurrence: None)
  Receive Date: 20090824
  Receipt Date: 20090812
  Transmission Date: 20100115
  Serious: Yes (Other)
  Sender: FDA-Public Use
  Company Number: CA-PFIZER INC-2009235383

PATIENT
  Age: 78 Year

DRUGS (2)
  1. VIAGRA [Suspect]
     Indication: ERECTILE DYSFUNCTION
     Dosage: 25 MG, WEEKLY
     Route: 048
     Dates: start: 20090401, end: 20090630
  2. VIAGRA [Suspect]
     Dosage: 100 MG, WEEKLY

REACTIONS (3)
  - BLOOD URINE PRESENT [None]
  - DRUG INEFFECTIVE [None]
  - FOOD INTERACTION [None]
